FAERS Safety Report 10440868 (Version 1)
Quarter: 2014Q3

REPORT INFORMATION
  Report Type: Spontaneous
  Country: US (occurrence: None)
  Receive Date: 20140908
  Receipt Date: 20140908
  Transmission Date: 20150326
  Serious: Yes (Hospitalization)
  Sender: FDA-Public Use
  Company Number: None

PATIENT
  Age: 61 Year
  Sex: Male
  Weight: 76 kg

DRUGS (1)
  1. ETODOLAC. [Suspect]
     Active Substance: ETODOLAC
     Indication: BACK PAIN
     Route: 048
     Dates: end: 20140527

REACTIONS (5)
  - Duodenitis [None]
  - Hiatus hernia [None]
  - Anaemia [None]
  - Gastrointestinal haemorrhage [None]
  - Pain [None]

NARRATIVE: CASE EVENT DATE: 20140527
